FAERS Safety Report 6998099-1 (Version None)
Quarter: 2010Q3

REPORT INFORMATION
  Report Type: 
  Country: None (occurrence: None)
  Receive Date: 20100920
  Receipt Date: 20100412
  Transmission Date: 20110219
  Serious: Yes (Hospitalization)
  Sender: FDA-Public Use
  Company Number: US-ASTRAZENECA-2009UW17326

PATIENT
  Age: 9096 Day
  Sex: Male

DRUGS (3)
  1. SEROQUEL [Suspect]
     Indication: SCHIZOPHRENIA
     Dosage: 500MG-800MG DAILY
     Route: 048
     Dates: start: 20040120
  2. ABILIFY [Concomitant]
     Indication: SCHIZOPHRENIA
     Dosage: 15MG-30MG AT NIGHT
     Dates: start: 20040109
  3. LORAZEPAM [Concomitant]
     Dates: start: 20040129

REACTIONS (3)
  - DIABETES MELLITUS [None]
  - DIABETIC KETOACIDOSIS [None]
  - OBESITY [None]
